FAERS Safety Report 20101706 (Version 1)
Quarter: 2021Q4

REPORT INFORMATION
  Report Type: Report from Study
  Country: IT (occurrence: IT)
  Receive Date: 20211123
  Receipt Date: 20211123
  Transmission Date: 20220303
  Serious: Yes (Other)
  Sender: FDA-Public Use
  Company Number: IT-UNITED THERAPEUTICS-UNT-2021-023233

PATIENT

DRUGS (1)
  1. TREPROSTINIL SODIUM [Suspect]
     Active Substance: TREPROSTINIL SODIUM
     Indication: Pulmonary arterial hypertension
     Dosage: UNK (INFUSION RATE OF 0.021 ML/H), CONTINUING
     Route: 058
     Dates: start: 20200708

REACTIONS (5)
  - Bradycardia [Unknown]
  - Overdose [Unknown]
  - Dyspnoea [Unknown]
  - Infusion site pain [Unknown]
  - Retching [Unknown]

NARRATIVE: CASE EVENT DATE: 20211112
